FAERS Safety Report 11294330 (Version 1)
Quarter: 2015Q3

REPORT INFORMATION
  Report Type: Spontaneous
  Country: US (occurrence: US)
  Receive Date: 20150722
  Receipt Date: 20150722
  Transmission Date: 20151125
  Serious: No
  Sender: FDA-Public Use
  Company Number: US-ELI_LILLY_AND_COMPANY-US200805003384

PATIENT
  Sex: Female

DRUGS (3)
  1. DHEA [Concomitant]
     Active Substance: PRASTERONE
     Dosage: 12.5 MG, DAILY (1/D)
  2. EVISTA [Suspect]
     Active Substance: RALOXIFENE HYDROCHLORIDE
     Indication: OSTEOPOROSIS
     Dosage: 60 MG, UNK
     Dates: start: 2000
  3. FOSAMAX [Concomitant]
     Active Substance: ALENDRONATE SODIUM
     Dates: end: 200612

REACTIONS (5)
  - Bone density decreased [Not Recovered/Not Resolved]
  - Tooth disorder [Unknown]
  - Vision blurred [Not Recovered/Not Resolved]
  - Osteoporosis [Not Recovered/Not Resolved]
  - Drug ineffective [Unknown]

NARRATIVE: CASE EVENT DATE: 200612
